FAERS Safety Report 13313207 (Version 1)
Quarter: 2017Q1

REPORT INFORMATION
  Report Type: Spontaneous
  Country: GB (occurrence: GB)
  Receive Date: 20170309
  Receipt Date: 20170309
  Transmission Date: 20170428
  Serious: Yes (Other)
  Sender: FDA-Public Use
  Company Number: GB-BAYER-2017-042736

PATIENT
  Age: 75 Year
  Sex: Female

DRUGS (3)
  1. SORAFENIB (RAF KINASE INHIBITOR) [Suspect]
     Active Substance: SORAFENIB
     Indication: HEPATOCELLULAR CARCINOMA
     Dosage: 400 MG DAILY
     Dates: start: 2013, end: 2013
  2. SORAFENIB (RAF KINASE INHIBITOR) [Suspect]
     Active Substance: SORAFENIB
     Indication: HEPATOCELLULAR CARCINOMA
     Dosage: 200 MG, QD
     Dates: start: 2013
  3. SORAFENIB (RAF KINASE INHIBITOR) [Suspect]
     Active Substance: SORAFENIB
     Indication: HEPATOCELLULAR CARCINOMA
     Dosage: 400 MG, BID
     Dates: start: 201307, end: 2013

REACTIONS (6)
  - Hepatic encephalopathy [None]
  - Alpha 1 foetoprotein increased [None]
  - Palmar-plantar erythrodysaesthesia syndrome [None]
  - Hepatic failure [None]
  - Ascites [None]
  - Hepatic function abnormal [Recovering/Resolving]

NARRATIVE: CASE EVENT DATE: 2013
